FAERS Safety Report 9837936 (Version 1)
Quarter: 2013Q4

REPORT INFORMATION
  Report Type: Spontaneous
  Country: US (occurrence: None)
  Receive Date: 20131205
  Receipt Date: 20131205
  Transmission Date: 20140711
  Serious: Yes (Other)
  Sender: FDA-Public Use
  Company Number: 163-POMAL-13102939

PATIENT
  Age: 61 Year
  Sex: Male

DRUGS (9)
  1. POMALYST [Suspect]
     Indication: PLASMA CELL MYELOMA
     Dosage: 4 MG, 21 IN 21 D PO
     Route: 048
     Dates: start: 201310
  2. ASPIRIN LOW STRENGTH (ACETYLSALICYLIC ACID) [Concomitant]
  3. OXYCODONE HCL (OXYCODONE HYDROCHLORIDE) [Concomitant]
  4. RAPAFLO(SILODOSIN) [Concomitant]
  5. ACYCLOVIR(ACICLOVIR) [Concomitant]
  6. MAGNESIUM OXIDE(MAGNESIUM OXIDE) [Concomitant]
  7. FOLIC ACID(FOLIC ACID) [Concomitant]
  8. LAMIVUDINE(LAMIVUDINE) [Concomitant]
  9. DIOVAN(VALSARTAN) [Concomitant]

REACTIONS (1)
  - Epistaxis [None]
